FAERS Safety Report 6295695-4 (Version None)
Quarter: 2009Q3

REPORT INFORMATION
  Report Type: 
  Country: None (occurrence: None)
  Receive Date: 20090803
  Receipt Date: 20090803
  Transmission Date: 20100115
  Serious: Yes (Hospitalization)
  Sender: FDA-Public Use
  Company Number: None

PATIENT
  Sex: Female
  Weight: 45.8133 kg

DRUGS (1)
  1. RECLAST [Suspect]
     Indication: OSTEOPOROSIS
     Dosage: ONE BOTTLE ONCE
     Dates: start: 20090505

REACTIONS (5)
  - CHILLS [None]
  - DYSGRAPHIA [None]
  - GAIT DISTURBANCE [None]
  - PAIN [None]
  - TREMOR [None]
